FAERS Safety Report 5360275-1 (Version None)
Quarter: 2007Q2

REPORT INFORMATION
  Report Type: 
  Country: None (occurrence: None)
  Receive Date: 20070618
  Receipt Date: 20070610
  Transmission Date: 20071010
  Serious: Yes (Death)
  Sender: FDA-Public Use
  Company Number: IL-NOVOPROD-263677

PATIENT
  Sex: Male
  Weight: 70 kg

DRUGS (4)
  1. NOVOSEVEN [Suspect]
     Indication: TRAUMATIC HAEMORRHAGE
     Dosage: 2 DOSES
     Route: 042
     Dates: start: 20070510, end: 20070510
  2. KETAMINE HCL [Concomitant]
     Indication: ANAESTHESIA
     Dosage: 50 MG, UNK
     Route: 042
     Dates: start: 20070510, end: 20070510
  3. NORCURON [Concomitant]
     Dosage: 4-8 MG
     Route: 042
     Dates: start: 20070510, end: 20070510
  4. GLYPRESSIN                         /00692901/ [Concomitant]
     Indication: BLOOD PRESSURE
     Dosage: 1 MG, UNK
     Route: 042
     Dates: start: 20070510, end: 20070510

REACTIONS (1)
  - SHOCK [None]
